FAERS Safety Report 14593753 (Version 6)
Quarter: 2018Q2

REPORT INFORMATION
  Report Type: Report from Study
  Country: BE (occurrence: BE)
  Receive Date: 20180302
  Receipt Date: 20180605
  Transmission Date: 20180711
  Serious: Yes (Death, Life-Threatening, Hospitalization, Other)
  Sender: FDA-Public Use
  Company Number: BE-B.I. PHARMACEUTICALS,INC./RIDGEFIELD-2018-BI-010740

PATIENT
  Age: 53 Year
  Sex: Male
  Weight: 80.5 kg

DRUGS (2)
  1. TAXOTERE [Concomitant]
     Active Substance: DOCETAXEL
     Indication: NON-SMALL CELL LUNG CANCER
     Dosage: UNIT DOSE AND DAILY DOSE: 75MG/M2, FORMULATION- INFUSION
     Route: 042
     Dates: start: 20180109, end: 20180516
  2. VARGATEF [Suspect]
     Active Substance: NINTEDANIB
     Indication: NON-SMALL CELL LUNG CANCER
     Dosage: DOSAGE FORM- PILL
     Route: 048
     Dates: start: 20180110, end: 20180223

REACTIONS (4)
  - Cerebrovascular accident [Recovered/Resolved]
  - Hypoxia [Fatal]
  - Cardiac arrest [Fatal]
  - Dyspnoea [Unknown]

NARRATIVE: CASE EVENT DATE: 20180223
